FAERS Safety Report 9550875 (Version 1)
Quarter: 2013Q3

REPORT INFORMATION
  Report Type: Spontaneous
  Country: US (occurrence: US)
  Receive Date: 20130924
  Receipt Date: 20130924
  Transmission Date: 20140515
  Serious: No
  Sender: FDA-Public Use
  Company Number: US-SANOFI-AVENTIS-2013SA040502

PATIENT
  Age: 56 Year
  Sex: Female
  Weight: 88.45 kg

DRUGS (6)
  1. AUBAGIO [Suspect]
     Indication: MULTIPLE SCLEROSIS
     Dosage: PRODUCT STARTED AROUND JANUARY 3RD
     Route: 048
     Dates: start: 201301
  2. VALIUM [Concomitant]
     Indication: VERTIGO
     Dates: start: 200604
  3. ZANAFLEX [Concomitant]
     Indication: MUSCLE SPASMS
     Route: 065
     Dates: start: 2012
  4. OMEPRAZOLE [Concomitant]
     Indication: GASTROOESOPHAGEAL REFLUX DISEASE
     Route: 065
     Dates: start: 2000
  5. PERCOCET [Concomitant]
     Indication: BACK PAIN
     Route: 065
     Dates: start: 201306
  6. MAXZIDE [Concomitant]
     Indication: BLOOD PRESSURE
     Route: 065
     Dates: start: 2011

REACTIONS (5)
  - Bronchitis [Recovered/Resolved]
  - Influenza like illness [Recovered/Resolved]
  - Hypertension [Unknown]
  - Upper respiratory tract infection [Unknown]
  - Drug dose omission [Unknown]
